FAERS Safety Report 6547548-1 (Version None)
Quarter: 2010Q1

REPORT INFORMATION
  Report Type: 
  Country: None (occurrence: None)
  Receive Date: 20100122
  Receipt Date: 20100118
  Transmission Date: 20100710
  Serious: Yes (Life-Threatening, Hospitalization)
  Sender: FDA-Public Use
  Company Number: PHHO2010CA01119

PATIENT
  Sex: Male
  Weight: 97 kg

DRUGS (10)
  1. NEORAL [Suspect]
     Indication: PSORIASIS
     Dosage: 1.5 MG/KG, BID
     Route: 048
     Dates: start: 20070508, end: 20070530
  2. LOSEC [Concomitant]
     Indication: GASTRIC ULCER
  3. ASPIRIN [Concomitant]
  4. TYLENOL (CAPLET) [Concomitant]
     Indication: ARTHRALGIA
  5. CENTURY PLUS [Concomitant]
  6. ECHINACEA [Concomitant]
  7. NOVO-KETOROLAC [Concomitant]
     Indication: NERVE COMPRESSION
  8. NOVO-CYCLOPRINE [Concomitant]
     Indication: NERVE COMPRESSION
  9. TYLENOL (CAPLET) [Concomitant]
     Indication: ARTHRALGIA
  10. VARENICLINE TARTRATE [Concomitant]

REACTIONS (4)
  - HAEMOPTYSIS [None]
  - PNEUMONIA BACTERIAL [None]
  - PULMONARY HAEMORRHAGE [None]
  - SERRATIA INFECTION [None]
